FAERS Safety Report 15938754 (Version 1)
Quarter: 2019Q1

REPORT INFORMATION
  Report Type: Spontaneous
  Country: US (occurrence: US)
  Receive Date: 20190208
  Receipt Date: 20190208
  Transmission Date: 20190417
  Serious: No
  Sender: FDA-Public Use
  Company Number: US-SA-2019SA035184

PATIENT
  Sex: Female

DRUGS (6)
  1. PRALUENT [Suspect]
     Active Substance: ALIROCUMAB
     Indication: HYPERLIPIDAEMIA
     Dosage: 150 MG, QOW
     Route: 058
     Dates: start: 20170818
  2. FLECAINIDE [Concomitant]
     Active Substance: FLECAINIDE
     Dosage: 100 MG
  3. WARFARIN SODIUM. [Concomitant]
     Active Substance: WARFARIN SODIUM
     Dosage: 2 MG
  4. ZETIA [Concomitant]
     Active Substance: EZETIMIBE
     Dosage: 10 MG
  5. DIFICID [Concomitant]
     Active Substance: FIDAXOMICIN
     Dosage: 200 MG
  6. LOSARTAN POTASSSIUM [Concomitant]
     Dosage: 25 MG

REACTIONS (1)
  - Product dose omission [Unknown]
